FAERS Safety Report 10044799 (Version 3)
Quarter: 2014Q2

REPORT INFORMATION
  Report Type: Report from Study
  Country: US (occurrence: US)
  Receive Date: 20140328
  Receipt Date: 20140414
  Transmission Date: 20141212
  Serious: Yes (Hospitalization, Other)
  Sender: FDA-Public Use
  Company Number: US-ABBVIE-14P-163-1210602-00

PATIENT
  Age: 18 Year
  Sex: Female
  Weight: 84 kg

DRUGS (6)
  1. HUMIRA [Suspect]
     Indication: CROHN^S DISEASE
     Route: 058
     Dates: start: 20140131, end: 20140131
  2. HUMIRA [Suspect]
     Route: 058
     Dates: start: 20140214, end: 20140214
  3. HUMIRA [Suspect]
     Dosage: 2ND 80MG DOSE PER PHYSICIAN^S ORDER
     Route: 058
     Dates: start: 20140228, end: 20140228
  4. PREVACID [Concomitant]
     Indication: PRODUCT USED FOR UNKNOWN INDICATION
  5. LEXAPRO [Concomitant]
     Indication: PRODUCT USED FOR UNKNOWN INDICATION
  6. BENTYL [Concomitant]
     Indication: PRODUCT USED FOR UNKNOWN INDICATION

REACTIONS (2)
  - Colitis ulcerative [Recovering/Resolving]
  - Crohn^s disease [Recovering/Resolving]
